FAERS Safety Report 9885386 (Version 2)
Quarter: 2014Q1

REPORT INFORMATION
  Report Type: Spontaneous
  Country: US (occurrence: US)
  Receive Date: 20140210
  Receipt Date: 20140221
  Transmission Date: 20141002
  Serious: No
  Sender: FDA-Public Use
  Company Number: US-PFIZER INC-2014036721

PATIENT
  Age: 49 Year
  Sex: Female
  Weight: 97.51 kg

DRUGS (5)
  1. LYRICA [Suspect]
     Indication: FIBROMYALGIA
     Dosage: 300 MG, 1X/DAY
     Route: 048
     Dates: start: 2012
  2. LYRICA [Suspect]
     Indication: MORTON^S NEURALGIA
     Dosage: 300 MG, 3X/DAY
     Route: 048
     Dates: end: 201401
  3. LYRICA [Suspect]
     Indication: TARSAL TUNNEL SYNDROME
  4. TENORMIN [Concomitant]
     Indication: BLOOD PRESSURE ABNORMAL
     Dosage: 50 MG, DAILY
  5. TYLENOL [Concomitant]
     Dosage: UNK

REACTIONS (5)
  - Off label use [Unknown]
  - Drug ineffective [Unknown]
  - Pain [Not Recovered/Not Resolved]
  - Pain in extremity [Not Recovered/Not Resolved]
  - Back pain [Not Recovered/Not Resolved]
